FAERS Safety Report 5329468-3 (Version None)
Quarter: 2007Q2

REPORT INFORMATION
  Report Type: 
  Country: None (occurrence: None)
  Receive Date: 20070221
  Receipt Date: 20060816
  Transmission Date: 20071010
  Serious: Yes (Hospitalization)
  Sender: FDA-Public Use
  Company Number: BDI-008521

PATIENT
  Age: 79 Year
  Sex: Female

DRUGS (12)
  1. ISOVUE-300 [Suspect]
     Indication: ABDOMINAL PAIN
     Dosage: 100 ML ONCE IV
     Route: 042
     Dates: start: 20060810, end: 20060810
  2. ISOVUE-300 [Suspect]
     Indication: COMPUTERISED TOMOGRAM
     Dosage: 100 ML ONCE IV
     Route: 042
     Dates: start: 20060810, end: 20060810
  3. ISOVUE-300 [Suspect]
     Indication: NODULE
     Dosage: 100 ML ONCE IV
     Route: 042
     Dates: start: 20060810, end: 20060810
  4. GLIPIZIDE [Concomitant]
  5. EFFEXOR [Concomitant]
  6. AVANDIA [Concomitant]
  7. DILTIAZEM [Concomitant]
  8. LIPITOR [Concomitant]
  9. ESTAZOLAM [Concomitant]
  10. ECOTRIN [Concomitant]
  11. ZYMAR [Concomitant]
  12. FLUOXETINE [Concomitant]

REACTIONS (1)
  - ANAPHYLACTIC SHOCK [None]
